FAERS Safety Report 6151849-9 (Version None)
Quarter: 2009Q2

REPORT INFORMATION
  Report Type: 
  Country: None (occurrence: None)
  Receive Date: 20090410
  Receipt Date: 20090330
  Transmission Date: 20091009
  Serious: Yes (Hospitalization)
  Sender: FDA-Public Use
  Company Number: FR-B.I. PHARMACEUTICALS,INC./RIDGEFIELD-2009-FF-00241FF

PATIENT
  Sex: Male

DRUGS (3)
  1. MECIR LP 0.4 [Suspect]
     Dosage: .4MG
     Route: 048
     Dates: start: 20080922, end: 20090222
  2. TRIVASTAL [Concomitant]
     Dosage: 60MG
     Route: 048
     Dates: start: 19890101
  3. BIPRETERAX [Concomitant]
     Dosage: 1ANZ
     Route: 048
     Dates: start: 20081222

REACTIONS (1)
  - ERYTHEMA MULTIFORME [None]
